FAERS Safety Report 18775495 (Version 1)
Quarter: 2021Q1

REPORT INFORMATION
  Report Type: Spontaneous
  Country: US (occurrence: US)
  Receive Date: 20210122
  Receipt Date: 20210122
  Transmission Date: 20210419
  Serious: No
  Sender: FDA-Public Use
  Company Number: US-ACCORD-167593

PATIENT
  Age: 29 Year
  Sex: Male
  Weight: 73.5 kg

DRUGS (1)
  1. CLOZAPINE ACCORD [Suspect]
     Active Substance: CLOZAPINE
     Indication: PRODUCT USED FOR UNKNOWN INDICATION
     Dosage: (6 100 MG) Q HS X2 WEEKS

REACTIONS (2)
  - Condition aggravated [Unknown]
  - Product substitution issue [Unknown]
